FAERS Safety Report 12237889 (Version 1)
Quarter: 2016Q2

REPORT INFORMATION
  Report Type: Spontaneous
  Country: CA (occurrence: US)
  Receive Date: 20160405
  Receipt Date: 20160405
  Transmission Date: 20160815
  Serious: Yes (Hospitalization)
  Sender: FDA-Public Use
  Company Number: CA-PFIZER INC-2016181483

PATIENT
  Age: 8 Decade
  Sex: Female

DRUGS (1)
  1. LIPITOR [Suspect]
     Active Substance: ATORVASTATIN CALCIUM

REACTIONS (4)
  - Hypoaesthesia [Unknown]
  - Hepatic enzyme abnormal [Unknown]
  - Myocardial infarction [Recovering/Resolving]
  - Dyspepsia [Unknown]
